FAERS Safety Report 8077262-5 (Version None)
Quarter: 2012Q1

REPORT INFORMATION
  Report Type: 
  Country: None (occurrence: None)
  Receive Date: 20120126
  Receipt Date: 20120126
  Transmission Date: 20120608
  Serious: Yes (Hospitalization)
  Sender: FDA-Public Use
  Company Number: None

PATIENT
  Sex: Male
  Weight: 88.9 kg

DRUGS (6)
  1. ETOPOSIDE [Suspect]
     Dosage: 512 MG
  2. RITUXIMAB (MOAB C2B8 ANTI CD20, CHIMERIC) [Suspect]
     Dosage: 800 MG
  3. VINCRISTINE SULFATE [Suspect]
     Dosage: 3.44 MG
  4. CYCLOPHOSPHAMIDE [Suspect]
     Dosage: 1920 MG
  5. DOXORUBICIN HCL [Suspect]
     Dosage: 104 MG
  6. PREDNISONE TAB [Suspect]
     Dosage: 1300 MG

REACTIONS (2)
  - TOXICITY TO VARIOUS AGENTS [None]
  - PAIN IN EXTREMITY [None]
